FAERS Safety Report 22640676 (Version 1)
Quarter: 2023Q2

REPORT INFORMATION
  Report Type: Report from Study
  Country: US (occurrence: US)
  Receive Date: 20230626
  Receipt Date: 20230626
  Transmission Date: 20230721
  Serious: No
  Sender: FDA-Public Use
  Company Number: US-Accord-280648

PATIENT
  Age: 63 Year
  Sex: Male

DRUGS (7)
  1. AMLODIPINE [Suspect]
     Active Substance: AMLODIPINE BESYLATE
     Indication: Product used for unknown indication
  2. RELUGOLIX [Suspect]
     Active Substance: RELUGOLIX
     Indication: Prostate cancer
     Dosage: STRENGTH:120 MILLIGRAM
  3. ABIRATERONE [Concomitant]
     Active Substance: ABIRATERONE
     Dosage: STRENGTH:250 MILLIGRAM
  4. PREDNISONE [Concomitant]
     Active Substance: PREDNISONE
     Dosage: STRENGTH: 5 MILLIGRAM
  5. RELUGOLIX [Suspect]
     Active Substance: RELUGOLIX
     Indication: Prostate cancer
     Dosage: STRENGTH:120 MILLIGRAM
  6. RELUGOLIX [Suspect]
     Active Substance: RELUGOLIX
     Indication: Prostate cancer
     Dosage: STRENGTH:120 MILLIGRAM QD
     Route: 065
  7. RELUGOLIX [Suspect]
     Active Substance: RELUGOLIX
     Indication: Prostate cancer
     Dosage: STRENGTH:120 MILLIGRAM
     Route: 065

REACTIONS (14)
  - Weight decreased [Not Recovered/Not Resolved]
  - Hot flush [Not Recovered/Not Resolved]
  - Musculoskeletal discomfort [Unknown]
  - Viral infection [Unknown]
  - Blood testosterone increased [Unknown]
  - Blood pressure increased [Not Recovered/Not Resolved]
  - Muscle atrophy [Unknown]
  - Fatigue [Unknown]
  - Lethargy [Unknown]
  - Pollakiuria [Unknown]
  - Nocturia [Unknown]
  - Headache [Unknown]
  - Urticaria [Unknown]
  - Myalgia [Unknown]
